FAERS Safety Report 7032287-3 (Version None)
Quarter: 2010Q4

REPORT INFORMATION
  Report Type: 
  Country: None (occurrence: None)
  Receive Date: 20101007
  Receipt Date: 20100715
  Transmission Date: 20110411
  Serious: No
  Sender: FDA-Public Use
  Company Number: A0870645A

PATIENT
  Age: 63 Year
  Sex: Male

DRUGS (2)
  1. REQUIP XL [Suspect]
     Indication: PARKINSON'S DISEASE
     Dosage: 8MG PER DAY
     Route: 048
     Dates: start: 20100401
  2. UNKNOWN MEDICATION [Concomitant]

REACTIONS (3)
  - ALOPECIA [None]
  - ENERGY INCREASED [None]
  - JOINT SWELLING [None]
